FAERS Safety Report 6265181-6 (Version None)
Quarter: 2009Q3

REPORT INFORMATION
  Report Type: 
  Country: None (occurrence: None)
  Receive Date: 20090713
  Receipt Date: 20090402
  Transmission Date: 20100115
  Serious: No
  Sender: FDA-Public Use
  Company Number: US-TYCO HEALTHCARE/MALLINCKRODT-T200900809

PATIENT
  Sex: Male

DRUGS (2)
  1. MORPHINE [Suspect]
     Indication: BACK PAIN
     Dosage: UNK
     Dates: end: 20050628
  2. MORPHINE [Suspect]
     Indication: NECK PAIN

REACTIONS (5)
  - FEELING COLD [None]
  - HOT FLUSH [None]
  - MALAISE [None]
  - NAUSEA [None]
  - SOMNOLENCE [None]
